FAERS Safety Report 21356902 (Version 1)
Quarter: 2022Q3

REPORT INFORMATION
  Report Type: Spontaneous
  Country: DE (occurrence: DE)
  Receive Date: 20220920
  Receipt Date: 20220920
  Transmission Date: 20221027
  Serious: Yes (Death, Other)
  Sender: FDA-Public Use
  Company Number: DE-BRISTOL-MYERS SQUIBB COMPANY-2022-109082

PATIENT
  Age: 66 Year
  Sex: Female
  Weight: 60 kg

DRUGS (3)
  1. HYDROXYUREA [Suspect]
     Active Substance: HYDROXYUREA
     Indication: Product used for unknown indication
     Dosage: 500 MG, 1-0-0-0, KAPSELN
     Route: 048
  2. Kaliumiodid/Levothyroxin-Natrium [Concomitant]
     Indication: Product used for unknown indication
     Dosage: 0.196|0.1 MG, 1-0-0-0, TABLETTEN
     Route: 048
  3. Alendrons?ure [Concomitant]
     Indication: Product used for unknown indication
     Dosage: 70 MG, NACH SCHEMA, BRAUSETABLETTEN
     Route: 048

REACTIONS (1)
  - Death [Fatal]
